FAERS Safety Report 6186095-6 (Version None)
Quarter: 2009Q2

REPORT INFORMATION
  Report Type: 
  Country: None (occurrence: None)
  Receive Date: 20090511
  Receipt Date: 20090504
  Transmission Date: 20091009
  Serious: Yes (Hospitalization)
  Sender: FDA-Public Use
  Company Number: DE-AVENTIS-200710668DE

PATIENT
  Age: 59 Year
  Sex: Female
  Weight: 69 kg

DRUGS (6)
  1. DOCETAXEL [Suspect]
     Route: 042
     Dates: start: 20070131, end: 20070131
  2. GEMCITABIN [Suspect]
     Route: 042
     Dates: start: 20070131, end: 20070131
  3. GEMCITABIN [Suspect]
     Route: 042
     Dates: start: 20070207, end: 20070207
  4. ONDANSETRON [Concomitant]
     Indication: ANTIEMETIC SUPPORTIVE CARE
     Route: 042
     Dates: start: 20070131, end: 20070131
  5. ONDANSETRON [Concomitant]
     Route: 042
     Dates: start: 20070207, end: 20070207
  6. LEVOTHYROXINE SODIUM [Concomitant]
     Indication: DRUG USE FOR UNKNOWN INDICATION
     Dosage: DOSE: 1-0-0

REACTIONS (3)
  - LARYNGITIS [None]
  - PNEUMONIA [None]
  - VOCAL CORD PARALYSIS [None]
